FAERS Safety Report 9891899 (Version 1)
Quarter: 2014Q1

REPORT INFORMATION
  Report Type: Spontaneous
  Country: US (occurrence: US)
  Receive Date: 20140212
  Receipt Date: 20140212
  Transmission Date: 20141002
  Serious: Yes (Other)
  Sender: FDA-Public Use
  Company Number: US-BAYER-2014-021620

PATIENT
  Age: 24 Year
  Sex: Female

DRUGS (1)
  1. SKYLA [Suspect]
     Indication: CONTRACEPTION
     Dosage: UNK
     Route: 015
     Dates: start: 20140113

REACTIONS (3)
  - Vaginal haemorrhage [None]
  - Post procedural haemorrhage [None]
  - Menorrhagia [None]
